FAERS Safety Report 17731803 (Version 1)
Quarter: 2020Q2

REPORT INFORMATION
  Report Type: Spontaneous
  Country: US (occurrence: US)
  Receive Date: 20200501
  Receipt Date: 20200501
  Transmission Date: 20200714
  Serious: No
  Sender: FDA-Public Use
  Company Number: US-ASTRAZENECA-2020SE52911

PATIENT
  Age: 26024 Day
  Sex: Female
  Weight: 65.8 kg

DRUGS (1)
  1. BYDUREON BCISE [Suspect]
     Active Substance: EXENATIDE
     Dosage: UNKNOWN
     Route: 065

REACTIONS (4)
  - Intentional device misuse [Unknown]
  - Injection site haemorrhage [Unknown]
  - Injection site injury [Unknown]
  - Device leakage [Unknown]

NARRATIVE: CASE EVENT DATE: 20200416
